FAERS Safety Report 14699849 (Version 1)
Quarter: 2018Q1

REPORT INFORMATION
  Report Type: Spontaneous
  Country: US (occurrence: US)
  Receive Date: 20180329
  Receipt Date: 20180329
  Transmission Date: 20180509
  Serious: Yes (Other)
  Sender: FDA-Public Use
  Company Number: None

PATIENT
  Age: 50 Year
  Sex: Female
  Weight: 88.65 kg

DRUGS (5)
  1. OMEPRAZOLE 40MG A DAY [Concomitant]
     Dates: start: 20120404
  2. ADVAIR 50/500 BID [Concomitant]
     Dates: start: 20140106
  3. FASENRA [Suspect]
     Active Substance: BENRALIZUMAB
     Indication: ASTHMA
     Dosage: ?          OTHER FREQUENCY:MONTHLY;?
     Route: 058
     Dates: start: 20180202, end: 20180305
  4. PREDNISONE 14 TO 30MG A DAY [Concomitant]
     Dates: start: 20110829
  5. ALBUTEROL EITHER IN PROAIR OR VIA NEBULIZER, SEVERAL TIMES A DAY [Concomitant]
     Dates: start: 20100707

REACTIONS (3)
  - Abdominal distension [None]
  - Pain [None]
  - Headache [None]

NARRATIVE: CASE EVENT DATE: 20180305
